FAERS Safety Report 23867966 (Version 1)
Quarter: 2024Q2

REPORT INFORMATION
  Report Type: Spontaneous
  Country: US (occurrence: US)
  Receive Date: 20240517
  Receipt Date: 20240517
  Transmission Date: 20240715
  Serious: No
  Sender: FDA-Public Use
  Company Number: US-ABBVIE-5756978

PATIENT
  Age: 63 Year
  Sex: Female

DRUGS (1)
  1. HUMIRA [Suspect]
     Active Substance: ADALIMUMAB
     Indication: Rheumatoid arthritis
     Dosage: FORM STRENGTH: 40 MILLIGRAM
     Route: 058
     Dates: start: 2023, end: 20240509

REACTIONS (5)
  - Grip strength decreased [Unknown]
  - Muscle spasms [Unknown]
  - Injection site injury [Unknown]
  - Injury associated with device [Unknown]
  - Circumstance or information capable of leading to device use error [Not Recovered/Not Resolved]

NARRATIVE: CASE EVENT DATE: 20240509
